FAERS Safety Report 7336322-4 (Version None)
Quarter: 2011Q1

REPORT INFORMATION
  Report Type: 
  Country: None (occurrence: None)
  Receive Date: 20110224
  Receipt Date: 20110214
  Transmission Date: 20110831
  Serious: Yes (Hospitalization)
  Sender: FDA-Public Use
  Company Number: LTI2011A00036

PATIENT
  Age: 54 Year
  Sex: Male

DRUGS (13)
  1. VASTAREL (TRIMETAZIDINE HYDROCHLORIDE) [Suspect]
     Indication: HYPERTENSION
     Dosage: 70 MG (35 MG, 2 IN 1 D) ORAL
     Route: 048
  2. ATORVASTATIN CALCIUM [Concomitant]
  3. AMLODIPINE BESYLATE [Suspect]
     Indication: HYPERTENSION
     Dosage: 10 MG (5 MG, 2 IN 1 D) ORAL
     Route: 048
  4. TRAMADOL HCL [Suspect]
     Indication: PAIN
     Dosage: 2 DF (1 DF, 2 IN 1 D) ORAL
     Route: 048
  5. KARDEGIC (ACETYLSALICYLATE LYSINE) [Concomitant]
  6. VICTOZA [Suspect]
     Dosage: 0.6 MG (1 IN 1 D) SUBCUTANEOUS, 1.2 MG (1 IN 1 D) SUBCUTANEOUS, 1.8 MG (1 IN 1 D) SUBCUTANEOUS
     Route: 058
     Dates: start: 20110118
  7. VICTOZA [Suspect]
     Dosage: 0.6 MG (1 IN 1 D) SUBCUTANEOUS, 1.2 MG (1 IN 1 D) SUBCUTANEOUS, 1.8 MG (1 IN 1 D) SUBCUTANEOUS
     Route: 058
     Dates: start: 20100501
  8. VICTOZA [Suspect]
     Dosage: 0.6 MG (1 IN 1 D) SUBCUTANEOUS, 1.2 MG (1 IN 1 D) SUBCUTANEOUS, 1.8 MG (1 IN 1 D) SUBCUTANEOUS
     Route: 058
     Dates: start: 20100515, end: 20110118
  9. BISOPROLOL FUMARATE [Suspect]
     Indication: HYPERTENSION
     Dosage: 20 MG ORAL
     Route: 048
  10. GLUCOPHAGE [Suspect]
     Indication: TYPE 2 DIABETES MELLITUS
     Dosage: (3 DF, 3 IN 1 D) ORAL
     Route: 048
  11. ACTOS [Suspect]
     Indication: TYPE 2 DIABETES MELLITUS
     Dosage: 15 MG (15 MG, 1 IN 1 D) ORAL
     Route: 048
  12. RAMIPRIL [Suspect]
     Indication: HYPERTENSION
     Dosage: 10 MG ORAL
     Route: 048
  13. IKOREL (NICORANDIL) [Concomitant]

REACTIONS (6)
  - MUSCULAR WEAKNESS [None]
  - MALAISE [None]
  - FALL [None]
  - SUPRAVENTRICULAR TACHYCARDIA [None]
  - BLOOD PRESSURE SYSTOLIC INCREASED [None]
  - VISUAL IMPAIRMENT [None]
